FAERS Safety Report 18567822 (Version 1)
Quarter: 2020Q4

REPORT INFORMATION
  Report Type: Spontaneous
  Country: NL (occurrence: NL)
  Receive Date: 20201202
  Receipt Date: 20201202
  Transmission Date: 20210114
  Serious: Yes (Hospitalization, Other)
  Sender: FDA-Public Use
  Company Number: NL-AUROBINDO-AUR-APL-2020-058977

PATIENT
  Sex: Female

DRUGS (2)
  1. AMOXICILLIN 500MG [Suspect]
     Active Substance: AMOXICILLIN
     Indication: PRODUCT USED FOR UNKNOWN INDICATION
     Dosage: UNK
     Route: 065
  2. CREON [Suspect]
     Active Substance: PANCRELIPASE AMYLASE\PANCRELIPASE LIPASE\PANCRELIPASE PROTEASE
     Indication: PANCREATIC CARCINOMA
     Dosage: UNK
     Route: 065
     Dates: start: 20201021

REACTIONS (2)
  - Influenza like illness [Recovering/Resolving]
  - Device related infection [Recovering/Resolving]

NARRATIVE: CASE EVENT DATE: 20201111
